FAERS Safety Report 25942681 (Version 1)
Quarter: 2025Q4

REPORT INFORMATION
  Report Type: Spontaneous
  Country: CN (occurrence: CN)
  Receive Date: 20251021
  Receipt Date: 20251021
  Transmission Date: 20260118
  Serious: Yes (Other)
  Sender: ROCHE
  Company Number: CN-ROCHE-10000413983

PATIENT
  Age: 51 Year
  Sex: Female

DRUGS (6)
  1. PERJETA [Suspect]
     Active Substance: PERTUZUMAB
     Indication: Breast cancer
     Route: 042
     Dates: start: 20250918, end: 20250918
  2. PERJETA [Suspect]
     Active Substance: PERTUZUMAB
     Dosage: 840/420 MG
     Route: 042
     Dates: start: 20250604, end: 20250604
  3. HERCEPTIN [Suspect]
     Active Substance: TRASTUZUMAB
     Indication: Breast cancer
     Route: 042
     Dates: start: 20250918, end: 20250918
  4. HERCEPTIN [Suspect]
     Active Substance: TRASTUZUMAB
     Dosage: 594/440 MG
     Route: 042
     Dates: start: 20250604, end: 20250604
  5. TAXOTERE [Suspect]
     Active Substance: DOCETAXEL
     Indication: Breast cancer
     Route: 042
     Dates: start: 20250918, end: 20250918
  6. TAXOTERE [Suspect]
     Active Substance: DOCETAXEL
     Route: 042
     Dates: start: 20250604, end: 20250604

REACTIONS (1)
  - Myelosuppression [Unknown]

NARRATIVE: CASE EVENT DATE: 20250925
